FAERS Safety Report 25045543 (Version 1)
Quarter: 2025Q1

REPORT INFORMATION
  Report Type: Spontaneous
  Country: US (occurrence: None)
  Receive Date: 20250305
  Receipt Date: 20250305
  Transmission Date: 20250409
  Serious: No
  Sender: FDA-CTU
  Company Number: None

PATIENT
  Age: 59 Year
  Sex: Male

DRUGS (1)
  1. MACITENTAN\TADALAFIL [Suspect]
     Active Substance: MACITENTAN\TADALAFIL
     Indication: Pulmonary arterial hypertension
     Dosage: 10MG/20MG QD ORAL ??STOP THERAP: 17-MAR
     Route: 048
     Dates: start: 20241217

REACTIONS (1)
  - Respiratory tract congestion [None]

NARRATIVE: CASE EVENT DATE: 20250305
